FAERS Safety Report 20775671 (Version 1)
Quarter: 2022Q2

REPORT INFORMATION
  Report Type: Spontaneous
  Country: US (occurrence: US)
  Receive Date: 20220502
  Receipt Date: 20220502
  Transmission Date: 20220721
  Serious: Yes (Hospitalization)
  Sender: FDA-Public Use
  Company Number: US-KYOWAKIRIN-2022BKK006543

PATIENT

DRUGS (2)
  1. CRYSVITA [Suspect]
     Active Substance: BUROSUMAB-TWZA
     Indication: Hereditary hypophosphataemic rickets
     Dosage: UNK, 1X/4 WEEKS, INJECT 20 MG (1 VIAL) EVERY FOUR WEEKS FOR A TOTAL DOSE OF 80 MG
     Route: 058
     Dates: start: 202102
  2. CRYSVITA [Suspect]
     Active Substance: BUROSUMAB-TWZA
     Indication: Hereditary hypophosphataemic rickets
     Dosage: UNK, 1X/4 WEEKS, TWO 30 MG VIALS EVERY FOUR WEEKS FOR A TOTAL DOSE OF 80 MG
     Route: 058
     Dates: start: 202102

REACTIONS (2)
  - Abscess [Unknown]
  - Spinal disorder [Unknown]
